FAERS Safety Report 21313299 (Version 1)
Quarter: 2022Q3

REPORT INFORMATION
  Report Type: Spontaneous
  Country: US (occurrence: US)
  Receive Date: 20220909
  Receipt Date: 20220909
  Transmission Date: 20221027
  Serious: Yes (Other)
  Sender: FDA-Public Use
  Company Number: US-BAYER-2022A124445

PATIENT
  Age: 26 Year
  Sex: Female

DRUGS (1)
  1. MIRENA [Suspect]
     Active Substance: LEVONORGESTREL
     Dosage: 20?G/DAY
     Route: 015
     Dates: start: 20220831, end: 20220831

REACTIONS (5)
  - Seizure [None]
  - Procedural pain [None]
  - Cold sweat [None]
  - Procedural nausea [None]
  - Procedural vomiting [None]

NARRATIVE: CASE EVENT DATE: 20220831
